FAERS Safety Report 12578939 (Version 2)
Quarter: 2016Q3

REPORT INFORMATION
  Report Type: Report from Study
  Country: FR (occurrence: FR)
  Receive Date: 20160721
  Receipt Date: 20160721
  Transmission Date: 20161109
  Serious: Yes (Other)
  Sender: FDA-Public Use
  Company Number: PHHY2016FR094961

PATIENT
  Age: 57 Year
  Sex: Male
  Weight: 85 kg

DRUGS (9)
  1. PENTACARINAT [Concomitant]
     Active Substance: PENTAMIDINE ISETHIONATE
     Indication: APLASTIC ANAEMIA
     Dosage: 1 SPRAY/MONTH
     Route: 048
     Dates: start: 20160427
  2. ZELITREX [Concomitant]
     Active Substance: VALACYCLOVIR HYDROCHLORIDE
     Indication: PROPHYLAXIS
     Dosage: 500 MG, BID
     Route: 048
     Dates: start: 20160426
  3. POLARAMINE [Concomitant]
     Active Substance: DEXCHLORPHENIRAMINE MALEATE
     Indication: PRODUCT USED FOR UNKNOWN INDICATION
     Dosage: UNK
     Route: 042
     Dates: start: 20160503, end: 20160505
  4. SOLU-MEDROL [Concomitant]
     Active Substance: METHYLPREDNISOLONE SODIUM SUCCINATE
     Indication: PRODUCT USED FOR UNKNOWN INDICATION
     Dosage: 85 MG, QD
     Route: 042
     Dates: start: 20160503
  5. NOXAFIL [Concomitant]
     Active Substance: POSACONAZOLE
     Indication: PROPHYLAXIS
     Dosage: 300 MG, BID
     Route: 048
     Dates: start: 20160504, end: 20160505
  6. GENERIC CICLOSPORIN [Suspect]
     Active Substance: CYCLOSPORINE
     Indication: APLASTIC ANAEMIA
     Dosage: 200 MG, BID
     Route: 048
     Dates: start: 20160503
  7. ATGAM [Suspect]
     Active Substance: EQUINE THYMOCYTE IMMUNE GLOBULIN
     Indication: APLASTIC ANAEMIA
     Dosage: 3400 MG, QID
     Route: 042
     Dates: start: 20160503
  8. GAVISCON [Concomitant]
     Active Substance: ALUMINUM HYDROXIDE\MAGNESIUM CARBONATE
     Indication: GASTROOESOPHAGEAL REFLUX DISEASE
     Dosage: 3 DF, QD (3 BAGS/DAY, AS NEEDED)
     Route: 048
     Dates: start: 20160426
  9. TAZOCILLINE [Concomitant]
     Active Substance: PIPERACILLIN SODIUM\TAZOBACTAM SODIUM
     Indication: PRODUCT USED FOR UNKNOWN INDICATION
     Dosage: 4 G, TID
     Route: 042
     Dates: start: 20160503

REACTIONS (11)
  - Tuberculosis [Unknown]
  - Hepatitis [Unknown]
  - Haemoglobin decreased [Unknown]
  - Product use issue [Unknown]
  - Capillary leak syndrome [Recovering/Resolving]
  - Transferrin saturation increased [Unknown]
  - Troponin I increased [Unknown]
  - Transferrin decreased [Unknown]
  - Glyceric acid urine increased [Unknown]
  - N-terminal prohormone brain natriuretic peptide increased [Unknown]
  - Blood test abnormal [Unknown]

NARRATIVE: CASE EVENT DATE: 20160503
